FAERS Safety Report 9718958 (Version 1)
Quarter: 2013Q4

REPORT INFORMATION
  Report Type: Spontaneous
  Country: US (occurrence: US)
  Receive Date: 20131127
  Receipt Date: 20131127
  Transmission Date: 20140711
  Serious: Yes (Hospitalization)
  Sender: FDA-Public Use
  Company Number: US-ABBVIE-13P-163-1172729-00

PATIENT
  Age: 44 Year
  Sex: Female
  Weight: 63.56 kg

DRUGS (7)
  1. LUPRON DEPOT [Suspect]
     Indication: ENDOMETRIOSIS
     Dates: start: 20130327, end: 20130624
  2. NORETHINDRONE ACETATE [Suspect]
     Indication: HORMONE REPLACEMENT THERAPY
     Dates: start: 20130620, end: 20130705
  3. SKELAXIN [Concomitant]
     Indication: PRODUCT USED FOR UNKNOWN INDICATION
  4. NORTRIPTYLINE [Concomitant]
     Indication: FIBROMYALGIA
  5. ENBREL [Concomitant]
     Indication: SPONDYLITIS
     Dates: start: 201302, end: 201305
  6. ENBREL [Concomitant]
     Dates: start: 201307, end: 201310
  7. LUNESTA [Concomitant]
     Indication: PRODUCT USED FOR UNKNOWN INDICATION

REACTIONS (10)
  - Hypoaesthesia [Recovered/Resolved]
  - Migraine [Recovered/Resolved]
  - Neck pain [Recovered/Resolved]
  - Nausea [Recovered/Resolved]
  - Dizziness [Recovered/Resolved]
  - Headache [Recovered/Resolved]
  - Asthenia [Recovered/Resolved]
  - Arthritis [Not Recovered/Not Resolved]
  - Pharyngitis streptococcal [Not Recovered/Not Resolved]
  - Endometriosis [Not Recovered/Not Resolved]
